FAERS Safety Report 7804071-1 (Version None)
Quarter: 2011Q4

REPORT INFORMATION
  Report Type: 
  Country: None (occurrence: None)
  Receive Date: 20111010
  Receipt Date: 20110929
  Transmission Date: 20120403
  Serious: Yes (Other)
  Sender: FDA-Public Use
  Company Number: US-JNJFOC-20111001590

PATIENT
  Sex: Male

DRUGS (1)
  1. HALDOL [Suspect]
     Indication: PRODUCT USED FOR UNKNOWN INDICATION
     Route: 030
     Dates: start: 20110801, end: 20110101

REACTIONS (8)
  - DYSKINESIA [None]
  - DYSPNOEA [None]
  - DYSARTHRIA [None]
  - INFLUENZA LIKE ILLNESS [None]
  - THIRST [None]
  - THROAT TIGHTNESS [None]
  - ABDOMINAL PAIN UPPER [None]
  - HEART RATE IRREGULAR [None]
